FAERS Safety Report 5238089-2 (Version None)
Quarter: 2007Q1

REPORT INFORMATION
  Report Type: 
  Country: None (occurrence: None)
  Receive Date: 20070209
  Receipt Date: 20070209
  Transmission Date: 20070707
  Serious: Yes (Hospitalization)
  Sender: FDA-Public Use
  Company Number: None

PATIENT
  Sex: Female
  Weight: 77 kg

DRUGS (1)
  1. DEPODUR [Suspect]
     Indication: POSTOPERATIVE ANALGESIA
     Dosage: 7 MG ONCE EPIDURAL
     Route: 008
     Dates: start: 20070207, end: 20070207

REACTIONS (2)
  - CONDITION AGGRAVATED [None]
  - HEART RATE DECREASED [None]
